FAERS Safety Report 5152481-6 (Version None)
Quarter: 2006Q4

REPORT INFORMATION
  Report Type: 
  Country: None (occurrence: None)
  Receive Date: 20061116
  Receipt Date: 20061016
  Transmission Date: 20070319
  Serious: Yes (Hospitalization)
  Sender: FDA-Public Use
  Company Number: US-ELI_LILLY_AND_COMPANY-US200610002823

PATIENT
  Age: 77 Year
  Sex: Female

DRUGS (6)
  1. HUMULIN 70/30 [Suspect]
     Indication: DIABETES MELLITUS
  2. HUMULIN 70/30 [Suspect]
     Dates: start: 19910101
  3. HUMALOG MIX 75/25 [Suspect]
     Dosage: UNK, UNK
     Dates: start: 20061001
  4. LANTUS [Concomitant]
     Indication: DIABETES MELLITUS
  5. LORTAB [Concomitant]
     Indication: PAIN
  6. VALIUM                                  /NET/ [Concomitant]
     Indication: NERVOUSNESS

REACTIONS (11)
  - BLOOD GLUCOSE DECREASED [None]
  - FEELING COLD [None]
  - FLUSHING [None]
  - HEADACHE [None]
  - HYPOTENSION [None]
  - NERVOUSNESS [None]
  - OESOPHAGEAL DISORDER [None]
  - PAIN [None]
  - PHARMACEUTICAL PRODUCT COMPLAINT [None]
  - THROMBOSIS IN DEVICE [None]
  - TINNITUS [None]
